FAERS Safety Report 12129939 (Version 1)
Quarter: 2016Q1

REPORT INFORMATION
  Report Type: Spontaneous
  Country: US (occurrence: None)
  Receive Date: 20160229
  Receipt Date: 20160229
  Transmission Date: 20160526
  Serious: Yes (Other)
  Sender: FDA-Public Use
  Company Number: None

PATIENT
  Age: 54 Year
  Sex: Female
  Weight: 92.99 kg

DRUGS (15)
  1. MONTELUKAST SOD. [Concomitant]
  2. NARATRIPTAN HCL [Suspect]
     Active Substance: NARATRIPTAN HYDROCHLORIDE
     Indication: MIGRAINE
     Dosage: 1 TABLET REPEAT IN 2 HRS
     Route: 048
     Dates: start: 20160207, end: 20160226
  3. PATANASE [Concomitant]
     Active Substance: OLOPATADINE HYDROCHLORIDE
  4. NAPROXEN. [Concomitant]
     Active Substance: NAPROXEN
  5. LOSARTON HCTZ [Concomitant]
  6. SUMATRIPTAN. [Suspect]
     Active Substance: SUMATRIPTAN
     Indication: MIGRAINE
     Dosage: 1 TABLET REPEAT IN 2 HRS.
     Route: 048
     Dates: start: 20160201, end: 20160205
  7. DICYCLOMINE [Concomitant]
     Active Substance: DICYCLOMINE HYDROCHLORIDE
  8. AMLODIPINE BESYLATE. [Concomitant]
     Active Substance: AMLODIPINE BESYLATE
  9. APRISO ER [Concomitant]
  10. PRAVASTATIN SODIUM. [Concomitant]
     Active Substance: PRAVASTATIN SODIUM
  11. CETERIZINE HCL [Concomitant]
  12. VITAMIN D2 [Concomitant]
     Active Substance: ERGOCALCIFEROL
  13. PROAIR HFA [Concomitant]
     Active Substance: ALBUTEROL SULFATE
  14. IMITREX [Concomitant]
     Active Substance: SUMATRIPTAN SUCCINATE
  15. ONDANSETRON [Concomitant]
     Active Substance: ONDANSETRON

REACTIONS (3)
  - Drug ineffective [None]
  - Intentional product use issue [None]
  - Product quality issue [None]

NARRATIVE: CASE EVENT DATE: 20160226
